FAERS Safety Report 8801468 (Version 2)
Quarter: 2015Q2

REPORT INFORMATION
  Report Type: Report from Study
  Country: US (occurrence: US)
  Receive Date: 20120921
  Receipt Date: 20150623
  Transmission Date: 20150821
  Serious: Yes (Death)
  Sender: FDA-Public Use
  Company Number: US-ROCHE-1126051

PATIENT
  Sex: Male

DRUGS (5)
  1. DECADRON [Concomitant]
     Active Substance: DEXAMETHASONE
  2. AVASTIN [Suspect]
     Active Substance: BEVACIZUMAB
     Indication: METASTATIC MALIGNANT MELANOMA
     Route: 042
     Dates: start: 20050723
  3. AVASTIN [Suspect]
     Active Substance: BEVACIZUMAB
     Route: 042
  4. TAXOTERE [Concomitant]
     Active Substance: DOCETAXEL
  5. BENADRYL [Concomitant]
     Active Substance: DIPHENHYDRAMINE HYDROCHLORIDE
     Route: 040

REACTIONS (8)
  - Haemorrhoidal haemorrhage [Unknown]
  - Oesophagitis [Unknown]
  - Stomatitis [Unknown]
  - Fatigue [Unknown]
  - Death [Fatal]
  - Off label use [Unknown]
  - Pain [Unknown]
  - Asthenia [Unknown]
